FAERS Safety Report 9708343 (Version 1)
Quarter: 2013Q4

REPORT INFORMATION
  Report Type: Spontaneous
  Country: US (occurrence: None)
  Receive Date: 20131121
  Receipt Date: 20131121
  Transmission Date: 20140711
  Serious: Yes (Disabling)
  Sender: FDA-Public Use
  Company Number: 2017184

PATIENT
  Age: 43 Year
  Sex: Male
  Weight: 111.37 kg

DRUGS (1)
  1. DEXTROSE [Suspect]
     Dosage: NOT APPLICABLE, NOT APPLICABLE, NOT APPLICABLE (UNKNOWN)?
     Dates: start: 20131106

REACTIONS (5)
  - Corneal abrasion [None]
  - Accidental exposure to product [None]
  - Device malfunction [None]
  - Syringe issue [None]
  - Wrong technique in drug usage process [None]
